FAERS Safety Report 5903149-7 (Version None)
Quarter: 2008Q3

REPORT INFORMATION
  Report Type: 
  Country: None (occurrence: None)
  Receive Date: 20080929
  Receipt Date: 20080929
  Transmission Date: 20090109
  Serious: No
  Sender: FDA-Public Use
  Company Number: None

PATIENT
  Age: 25 Year
  Sex: Female
  Weight: 56.6996 kg

DRUGS (1)
  1. MINOCYCLINE HCL [Suspect]
     Indication: ACNE

REACTIONS (7)
  - ASTIGMATISM [None]
  - BENIGN INTRACRANIAL HYPERTENSION [None]
  - HYPERTENSION [None]
  - PALPITATIONS [None]
  - RASH [None]
  - VISUAL FIELD DEFECT [None]
  - VISUAL IMPAIRMENT [None]
